FAERS Safety Report 4903736-9 (Version None)
Quarter: 2006Q1

REPORT INFORMATION
  Report Type: 
  Country: None (occurrence: None)
  Receive Date: 20060203
  Receipt Date: 20060124
  Transmission Date: 20060701
  Serious: Yes (Disabling)
  Sender: FDA-Public Use
  Company Number: 2006008696

PATIENT
  Age: 39 Year
  Sex: Male

DRUGS (6)
  1. UNACID INJECTION (SULBACTAM, AMPICILLIN) [Suspect]
     Indication: HYDRONEPHROSIS
     Dosage: INTRAVENOUS
     Route: 042
     Dates: start: 20051224
  2. UNACID INJECTION (SULBACTAM, AMPICILLIN) [Suspect]
     Indication: NEPHROLITHIASIS
     Dosage: INTRAVENOUS
     Route: 042
     Dates: start: 20051224
  3. UNACID INJECTION (SULBACTAM, AMPICILLIN) [Suspect]
     Indication: RENAL DISORDER
     Dosage: INTRAVENOUS
     Route: 042
     Dates: start: 20051224
  4. UNACID PD (SULTAMICILLIN) [Suspect]
     Indication: HYDRONEPHROSIS
     Dosage: ORAL
     Route: 048
     Dates: end: 20060110
  5. UNACID PD (SULTAMICILLIN) [Suspect]
     Indication: NEPHROLITHIASIS
     Dosage: ORAL
     Route: 048
     Dates: end: 20060110
  6. UNACID PD (SULTAMICILLIN) [Suspect]
     Indication: RENAL DISORDER
     Dosage: ORAL
     Route: 048
     Dates: end: 20060110

REACTIONS (5)
  - DIZZINESS [None]
  - DYSSTASIA [None]
  - FEELING ABNORMAL [None]
  - PALLOR [None]
  - SOMNOLENCE [None]
